FAERS Safety Report 4861095-4 (Version None)
Quarter: 2005Q4

REPORT INFORMATION
  Report Type: 
  Country: None (occurrence: None)
  Receive Date: 20051220
  Receipt Date: 20051213
  Transmission Date: 20060501
  Serious: Yes (Other)
  Sender: FDA-Public Use
  Company Number: NL-GLAXOSMITHKLINE-B0403615A

PATIENT
  Age: 34 Year
  Sex: Female

DRUGS (1)
  1. BUPROPION HYDROCHLORIDE [Suspect]
     Dates: start: 20000401

REACTIONS (5)
  - BALANCE DISORDER [None]
  - DIZZINESS [None]
  - MALAISE [None]
  - MOBILITY DECREASED [None]
  - VERTIGO [None]
